FAERS Safety Report 10044331 (Version 1)
Quarter: 2014Q1

REPORT INFORMATION
  Report Type: Spontaneous
  Country: US (occurrence: US)
  Receive Date: 20140328
  Receipt Date: 20140328
  Transmission Date: 20141002
  Serious: Yes (Other)
  Sender: FDA-Public Use
  Company Number: US-PFIZER INC-2014086929

PATIENT
  Age: 26 Year
  Sex: Male

DRUGS (4)
  1. MORPHINE SULFATE [Suspect]
     Dosage: UNK
     Route: 048
  2. OXYCODONE HYDROCHLORIDE [Suspect]
     Dosage: UNK
     Route: 048
  3. MARIJUANA [Suspect]
     Dosage: UNK
     Route: 065
  4. HEROIN [Suspect]
     Dosage: UNK

REACTIONS (5)
  - Substance abuse [Unknown]
  - Road traffic accident [Unknown]
  - Impaired driving ability [Unknown]
  - Feeling abnormal [Unknown]
  - Confusional state [Unknown]
